FAERS Safety Report 17001394 (Version 1)
Quarter: 2019Q4

REPORT INFORMATION
  Report Type: Spontaneous
  Country: US (occurrence: US)
  Receive Date: 20191106
  Receipt Date: 20191106
  Transmission Date: 20200122
  Serious: Yes (Other)
  Sender: FDA-Public Use
  Company Number: US-MELINTA THERAPEUTICS, INC-US-MLNT-19-00193

PATIENT
  Age: 38 Year
  Sex: Male

DRUGS (8)
  1. AMIKACIN. [Suspect]
     Active Substance: AMIKACIN
     Indication: CENTRAL NERVOUS SYSTEM INFECTION
  2. VABOMERE [Suspect]
     Active Substance: MEROPENEM\VABORBACTAM
     Indication: KLEBSIELLA SEPSIS
     Dosage: NOT PROVIDED.
  3. AMIKACIN. [Suspect]
     Active Substance: AMIKACIN
     Indication: CNS VENTRICULITIS
  4. VABOMERE [Suspect]
     Active Substance: MEROPENEM\VABORBACTAM
     Indication: CENTRAL NERVOUS SYSTEM INFECTION
  5. AMIKACIN. [Suspect]
     Active Substance: AMIKACIN
     Indication: CEREBRAL CYST
  6. VABOMERE [Suspect]
     Active Substance: MEROPENEM\VABORBACTAM
     Indication: CNS VENTRICULITIS
  7. VABOMERE [Suspect]
     Active Substance: MEROPENEM\VABORBACTAM
     Indication: CEREBRAL CYST
  8. AMIKACIN. [Suspect]
     Active Substance: AMIKACIN
     Indication: KLEBSIELLA SEPSIS
     Dosage: NOT PROVIDED.

REACTIONS (4)
  - Off label use [Unknown]
  - Drug ineffective for unapproved indication [Unknown]
  - Neurological examination abnormal [Unknown]
  - Brain abscess [Unknown]
